FAERS Safety Report 8311096-9 (Version None)
Quarter: 2012Q2

REPORT INFORMATION
  Report Type: 
  Country: None (occurrence: None)
  Receive Date: 20120425
  Receipt Date: 20120410
  Transmission Date: 20120825
  Serious: Yes (Other)
  Sender: FDA-Public Use
  Company Number: US-ROCHE-790126

PATIENT
  Sex: Male
  Weight: 81.72 kg

DRUGS (3)
  1. ACCUTANE [Suspect]
     Indication: ACNE CYSTIC
     Route: 065
     Dates: start: 20010101, end: 20010501
  2. ACCUTANE [Suspect]
     Dates: start: 20011201, end: 20020601
  3. ACCUTANE [Suspect]
     Dates: start: 20050101, end: 20050501

REACTIONS (6)
  - FISTULA [None]
  - EMOTIONAL DISTRESS [None]
  - DEPRESSION [None]
  - CROHN'S DISEASE [None]
  - ANAL ABSCESS [None]
  - SUICIDAL IDEATION [None]
